FAERS Safety Report 5854351-4 (Version None)
Quarter: 2008Q3

REPORT INFORMATION
  Report Type: 
  Country: None (occurrence: None)
  Receive Date: 20080822
  Receipt Date: 20080819
  Transmission Date: 20090109
  Serious: Yes (Other)
  Sender: FDA-Public Use
  Company Number: BE-BOEHRINGER INGELHEIM GMBH, GERMANY-2008-DE-04898GD

PATIENT
  Sex: Male

DRUGS (4)
  1. RANITIDINE [Suspect]
  2. DICLOFENAC [Suspect]
  3. LORMETAZEPAM [Suspect]
  4. IRON [Suspect]

REACTIONS (3)
  - DYSPHAGIA [None]
  - OESOPHAGITIS [None]
  - WEIGHT DECREASED [None]
